FAERS Safety Report 15267918 (Version 1)
Quarter: 2018Q3

REPORT INFORMATION
  Report Type: Spontaneous
  Country: US (occurrence: US)
  Receive Date: 20180725
  Receipt Date: 20180725
  Transmission Date: 20181010
  Serious: No
  Sender: FDA-Public Use
  Company Number: None

PATIENT
  Age: 6 Year
  Sex: Male
  Weight: 36 kg

DRUGS (1)
  1. SINGULAIR [Suspect]
     Active Substance: MONTELUKAST SODIUM
     Indication: SEASONAL ALLERGY
     Dates: start: 20140401, end: 20140414

REACTIONS (4)
  - Depression [None]
  - Hallucination, visual [None]
  - Abnormal behaviour [None]
  - Aggression [None]

NARRATIVE: CASE EVENT DATE: 20140401
